FAERS Safety Report 9820616 (Version 1)
Quarter: 2014Q1

REPORT INFORMATION
  Report Type: Report from Study
  Country: FR (occurrence: FR)
  Receive Date: 20140116
  Receipt Date: 20140116
  Transmission Date: 20141002
  Serious: Yes (Death, Hospitalization)
  Sender: FDA-Public Use
  Company Number: FR-ACTELION-A-CH2013-91235

PATIENT
  Age: 67 Year
  Sex: Female

DRUGS (5)
  1. TRACLEER [Suspect]
     Indication: SKIN ULCER
     Dosage: 62.5 MG, BID
     Route: 048
     Dates: start: 20090224, end: 20090226
  2. SPIRONOLACTONE [Concomitant]
     Dosage: 75 MG, BID
  3. LASILIX [Concomitant]
     Dosage: UNK
  4. SMECTA [Concomitant]
  5. TIORFAN [Concomitant]

REACTIONS (16)
  - Hepatic failure [Fatal]
  - Pneumonia aspiration [Fatal]
  - Pneumonia [Unknown]
  - Right ventricular failure [Recovering/Resolving]
  - Renal failure acute [Unknown]
  - Drug intolerance [Unknown]
  - Diarrhoea [Unknown]
  - Asthenia [Fatal]
  - Decreased appetite [Fatal]
  - Hypothermia [Unknown]
  - Oxygen saturation decreased [Unknown]
  - Ascites [Fatal]
  - Oedema peripheral [Fatal]
  - Jaundice [Fatal]
  - Dyspnoea [Unknown]
  - Hepatic encephalopathy [Fatal]
